FAERS Safety Report 14085190 (Version 2)
Quarter: 2018Q1

REPORT INFORMATION
  Report Type: Report from Study
  Country: BR (occurrence: BR)
  Receive Date: 20171013
  Receipt Date: 20180202
  Transmission Date: 20180508
  Serious: Yes (Other)
  Sender: FDA-Public Use
  Company Number: BR-ROCHE-1935597

PATIENT
  Age: 41 Year
  Sex: Female
  Weight: 62 kg

DRUGS (9)
  1. METILPREDNISOLONE [Concomitant]
     Active Substance: METHYLPREDNISOLONE
     Route: 065
     Dates: start: 20170510
  2. CERAZETTE (BRAZIL) [Concomitant]
     Indication: CONTRACEPTION
  3. MABTHERA [Suspect]
     Active Substance: RITUXIMAB
     Indication: RHEUMATOID ARTHRITIS
     Dosage: 24 ML/H ?LAST DOSE WAS ON 10/MAY/2017.
     Route: 042
     Dates: start: 20170425, end: 20170510
  4. DIPHENHYDRAMINE. [Concomitant]
     Active Substance: DIPHENHYDRAMINE
     Dosage: AFTER INFUSION AS TREATMENT
     Route: 065
     Dates: start: 20170510
  5. PARACETAMOL [Concomitant]
     Active Substance: ACETAMINOPHEN
     Route: 065
     Dates: start: 20170510
  6. REUQUINOL [Concomitant]
     Active Substance: HYDROXYCHLOROQUINE SULFATE
     Route: 065
  7. BI-PROFENID [Concomitant]
     Active Substance: KETOPROFEN
     Route: 065
  8. DIPHENHYDRAMINE. [Concomitant]
     Active Substance: DIPHENHYDRAMINE
     Route: 065
     Dates: start: 20170510
  9. PRELONE [Concomitant]
     Active Substance: PREDNISOLONE
     Route: 065

REACTIONS (17)
  - Nail disorder [Not Recovered/Not Resolved]
  - Angioedema [Recovered/Resolved]
  - Respiratory arrest [Recovered/Resolved]
  - Laryngeal oedema [Recovered/Resolved]
  - Throat tightness [Recovered/Resolved]
  - Erythema [Recovered/Resolved]
  - Pruritus [Recovered/Resolved]
  - Urticaria [Recovered/Resolved]
  - Bronchospasm [Recovered/Resolved]
  - Peripheral swelling [Recovered/Resolved]
  - Pruritus [Recovered/Resolved]
  - Skin injury [Recovered/Resolved]
  - Malaise [Recovered/Resolved]
  - Anxiety [Recovered/Resolved]
  - Cough [Recovered/Resolved]
  - Dyspnoea [Recovered/Resolved]
  - Ill-defined disorder [Recovered/Resolved]

NARRATIVE: CASE EVENT DATE: 201705
